FAERS Safety Report 12387403 (Version 6)
Quarter: 2017Q1

REPORT INFORMATION
  Report Type: Spontaneous
  Country: JP (occurrence: JP)
  Receive Date: 20160519
  Receipt Date: 20170208
  Transmission Date: 20170428
  Serious: Yes (Hospitalization)
  Sender: FDA-Public Use
  Company Number: PHJP2016JP012120

PATIENT
  Age: 72 Year
  Sex: Male
  Weight: 64 kg

DRUGS (1)
  1. COSENTYX [Suspect]
     Active Substance: SECUKINUMAB
     Indication: PUSTULAR PSORIASIS
     Dosage: 300 MG, UNK
     Route: 058
     Dates: start: 20160330, end: 20160330

REACTIONS (8)
  - Pruritus [Recovering/Resolving]
  - Cellulitis [Recovered/Resolved]
  - Pyrexia [Recovering/Resolving]
  - Sepsis [Recovered/Resolved]
  - Tenderness [Recovered/Resolved]
  - Pneumonia aspiration [Recovered/Resolved]
  - Erythema [Recovered/Resolved]
  - Cough [Recovered/Resolved]

NARRATIVE: CASE EVENT DATE: 20160419
